FAERS Safety Report 24446887 (Version 1)
Quarter: 2024Q4

REPORT INFORMATION
  Report Type: Spontaneous
  Country: SA (occurrence: SA)
  Receive Date: 20241016
  Receipt Date: 20241016
  Transmission Date: 20250115
  Serious: Yes (Hospitalization)
  Sender: STRIDES
  Company Number: SA-STRIDES ARCOLAB LIMITED-2024SP013357

PATIENT
  Age: 27 Year
  Sex: Female

DRUGS (1)
  1. CABERGOLINE [Suspect]
     Active Substance: CABERGOLINE
     Indication: Prolactin-producing pituitary tumour
     Dosage: 0.5 MILLIGRAM, ONCE A WEEK
     Route: 048

REACTIONS (1)
  - Reversible cerebral vasoconstriction syndrome [Recovered/Resolved]
